FAERS Safety Report 13289730 (Version 1)
Quarter: 2017Q1

REPORT INFORMATION
  Report Type: Spontaneous
  Country: US (occurrence: US)
  Receive Date: 20170302
  Receipt Date: 20170302
  Transmission Date: 20170428
  Serious: Yes (Other)
  Sender: FDA-Public Use
  Company Number: US-DEPOMED, INC.-US-2016DEP012441

PATIENT

DRUGS (1)
  1. GRALISE [Suspect]
     Active Substance: GABAPENTIN
     Indication: PRODUCT USED FOR UNKNOWN INDICATION
     Dosage: 300 MG, QD, WITH EVENING MEAL
     Route: 048
     Dates: start: 20160714

REACTIONS (2)
  - Weight increased [Unknown]
  - Depressed mood [Unknown]

NARRATIVE: CASE EVENT DATE: 2016
